FAERS Safety Report 10685074 (Version 9)
Quarter: 2015Q3

REPORT INFORMATION
  Report Type: Report from Study
  Country: US (occurrence: US)
  Receive Date: 20141231
  Receipt Date: 20150723
  Transmission Date: 20151125
  Serious: Yes (Hospitalization, Other)
  Sender: FDA-Public Use
  Company Number: US-SA-2014SA174619

PATIENT
  Age: 59 Year
  Sex: Female

DRUGS (8)
  1. AUBAGIO [Suspect]
     Active Substance: TERIFLUNOMIDE
     Indication: RELAPSING-REMITTING MULTIPLE SCLEROSIS
     Route: 048
     Dates: start: 20150214, end: 20150601
  2. AUBAGIO [Suspect]
     Active Substance: TERIFLUNOMIDE
     Indication: RELAPSING-REMITTING MULTIPLE SCLEROSIS
     Route: 048
  3. VITAMIN D [Concomitant]
     Active Substance: CHOLECALCIFEROL
     Dosage: DAILY DOSE: 4-1000
  4. PROZAC [Concomitant]
     Active Substance: FLUOXETINE HYDROCHLORIDE
     Indication: MULTIPLE SCLEROSIS
     Dosage: DAILY DOSE: 60
     Dates: start: 1998
  5. AUBAGIO [Suspect]
     Active Substance: TERIFLUNOMIDE
     Indication: RELAPSING-REMITTING MULTIPLE SCLEROSIS
     Route: 048
     Dates: start: 20141210, end: 20141219
  6. BACLOFEN. [Concomitant]
     Active Substance: BACLOFEN
     Indication: MULTIPLE SCLEROSIS
     Dosage: DAILY DOSE: 60
  7. FISH OIL [Concomitant]
     Active Substance: FISH OIL
     Dosage: DAILY DOSE: 1
  8. MINERALS NOS/VITAMINS NOS [Concomitant]
     Dosage: DAILY DOSE: 1

REACTIONS (9)
  - Bladder operation [Unknown]
  - Pain in extremity [Unknown]
  - Malaise [Unknown]
  - Blindness unilateral [Unknown]
  - Drug intolerance [Unknown]
  - Pain [Unknown]
  - Unevaluable event [Unknown]
  - Muscular weakness [Unknown]
  - Asthenia [Unknown]

NARRATIVE: CASE EVENT DATE: 201412
